FAERS Safety Report 5114572-5 (Version None)
Quarter: 2006Q3

REPORT INFORMATION
  Report Type: 
  Country: None (occurrence: None)
  Receive Date: 20060926
  Receipt Date: 20051024
  Transmission Date: 20061208
  Serious: Yes (Disabling, Other)
  Sender: FDA-Public Use
  Company Number: PHRM2005FR02843

PATIENT
  Age: 76 Year
  Sex: Female

DRUGS (4)
  1. CORTICOSTEROID NOS [Concomitant]
  2. CHEMOTHERAPEUTICS,OTHER [Concomitant]
  3. ZOMETA [Suspect]
     Dosage: 4 MG, QMO
     Route: 042
     Dates: start: 20020701, end: 20050701
  4. AREDIA [Suspect]
     Dosage: 1 DF, QMO
     Route: 042
     Dates: start: 19980701, end: 20020601

REACTIONS (2)
  - OSTEONECROSIS [None]
  - TOOTH EXTRACTION [None]
